FAERS Safety Report 16058745 (Version 2)
Quarter: 2019Q1

REPORT INFORMATION
  Report Type: Spontaneous
  Country: FR (occurrence: FR)
  Receive Date: 20190311
  Receipt Date: 20190311
  Transmission Date: 20190418
  Serious: Yes (Death, Other)
  Sender: FDA-Public Use
  Company Number: FR-PFIZER INC-2019100041

PATIENT
  Age: 42 Year
  Sex: Female

DRUGS (9)
  1. CYTARABINE. [Suspect]
     Active Substance: CYTARABINE
     Dosage: 500 MG/M2, DAILY (ON DAYS 20-22, DOUBLE INDUCTION CHEMOTHERAPY)
     Dates: start: 1993, end: 1993
  2. CYTARABINE. [Suspect]
     Active Substance: CYTARABINE
     Dosage: UNK (CONSOLIDATION CHEMOTHERAPIES MITOXANTRONE-CYTARABINE-ETOPOSIDE)
     Dates: start: 1994, end: 1994
  3. MITOXANTRONE [Suspect]
     Active Substance: MITOXANTRONE HYDROCHLORIDE
     Indication: ACUTE MYELOID LEUKAEMIA
     Dosage: 12 MG/M2, DAILY(ON DAY 20 AND 21, DOUBLE INDUCTION CHEMOTHERAPY)
     Dates: start: 1993, end: 1993
  4. MITOXANTRONE [Suspect]
     Active Substance: MITOXANTRONE HYDROCHLORIDE
     Dosage: UNK (CONSOLIDATION CHEMOTHERAPIES MITOXANTRONE-CYTARABINE-ETOPOSIDE)
     Dates: start: 1994, end: 1994
  5. CYTARABINE. [Suspect]
     Active Substance: CYTARABINE
     Indication: ACUTE MYELOID LEUKAEMIA
     Dosage: 200 MG/M2, DAILY (ON DAYS 1-7, DOUBLE INDUCTION CHEMOTHERAPY)
     Dates: start: 1993, end: 1993
  6. CYTARABINE. [Suspect]
     Active Substance: CYTARABINE
     Dosage: UNK (CONSOLIDATION CHEMOTHERAPIES CYTARABINE-AMSACRINE)
     Dates: start: 1994, end: 1994
  7. AMSACRINE [Suspect]
     Active Substance: AMSACRINE
     Indication: ACUTE MYELOID LEUKAEMIA
     Dosage: UNK (CONSOLIDATION CHEMOTHERAPIES CYTARABINE-AMSACRINE)
     Dates: start: 1994, end: 1994
  8. ETOPOSIDE. [Suspect]
     Active Substance: ETOPOSIDE
     Indication: ACUTE MYELOID LEUKAEMIA
     Dosage: UNK (ONSOLIDATION CHEMOTHERAPY)
     Dates: start: 1994, end: 1994
  9. DAUNORUBICIN [Suspect]
     Active Substance: DAUNORUBICIN
     Indication: ACUTE MYELOID LEUKAEMIA
     Dosage: 80 MG/M2, DAILY (ON DAYS 1-3, DOUBLE INDUCTION CHEMOTHERAPY)
     Dates: start: 1993, end: 1993

REACTIONS (2)
  - Precursor T-lymphoblastic lymphoma/leukaemia recurrent [Fatal]
  - Second primary malignancy [Fatal]

NARRATIVE: CASE EVENT DATE: 1994
